FAERS Safety Report 24595367 (Version 2)
Quarter: 2024Q4

REPORT INFORMATION
  Report Type: Spontaneous
  Country: JP (occurrence: JP)
  Receive Date: 20241109
  Receipt Date: 20241223
  Transmission Date: 20250115
  Serious: Yes (Other)
  Sender: JOHNSON AND JOHNSON
  Company Number: JP-JNJFOC-20241121046

PATIENT
  Age: 5 Decade
  Sex: Female

DRUGS (33)
  1. EPOPROSTENOL SODIUM [Suspect]
     Active Substance: EPOPROSTENOL SODIUM
     Indication: Pulmonary arterial hypertension
     Dosage: 4 NG/KG/MIN
     Route: 042
     Dates: start: 201109
  2. EPOPROSTENOL SODIUM [Suspect]
     Active Substance: EPOPROSTENOL SODIUM
     Dosage: 6 NG/KG/MIN
     Route: 042
  3. EPOPROSTENOL SODIUM [Suspect]
     Active Substance: EPOPROSTENOL SODIUM
     Dosage: 7 NG/KG/MIN
     Route: 042
  4. EPOPROSTENOL SODIUM [Suspect]
     Active Substance: EPOPROSTENOL SODIUM
     Dosage: 8 NG/KG/MIN
     Route: 042
     Dates: start: 20120531, end: 2013
  5. EPOPROSTENOL SODIUM [Suspect]
     Active Substance: EPOPROSTENOL SODIUM
     Dosage: 9 NG/KG/MIN
     Route: 042
     Dates: start: 20130510
  6. EPOPROSTENOL SODIUM [Suspect]
     Active Substance: EPOPROSTENOL SODIUM
     Dosage: 10 NG/KG/MIN
     Route: 042
     Dates: start: 20140117, end: 2015
  7. EPOPROSTENOL SODIUM [Suspect]
     Active Substance: EPOPROSTENOL SODIUM
     Dosage: 11 NG/KG/MIN
     Route: 042
     Dates: start: 20150826
  8. EPOPROSTENOL SODIUM [Suspect]
     Active Substance: EPOPROSTENOL SODIUM
     Dosage: 12 NG/KG/MIN
     Route: 042
     Dates: end: 2023
  9. EPOPROSTENOL SODIUM [Suspect]
     Active Substance: EPOPROSTENOL SODIUM
     Dosage: 13 NG/KG/MIN
     Route: 042
     Dates: start: 20230608, end: 2023
  10. EPOPROSTENOL SODIUM [Suspect]
     Active Substance: EPOPROSTENOL SODIUM
     Dosage: 14 NG/KG/MIN
     Route: 042
     Dates: start: 202407
  11. EPOPROSTENOL SODIUM [Suspect]
     Active Substance: EPOPROSTENOL SODIUM
     Dosage: 15 NG/KG/MIN
     Route: 042
     Dates: start: 20110913, end: 2011
  12. EPOPROSTENOL SODIUM [Suspect]
     Active Substance: EPOPROSTENOL SODIUM
     Dosage: 16 NG/KG/MIN
     Route: 042
     Dates: start: 2011, end: 2011
  13. EPOPROSTENOL SODIUM [Suspect]
     Active Substance: EPOPROSTENOL SODIUM
     Dosage: 17 NG/KG/MIN
     Route: 042
     Dates: start: 20221124, end: 2023
  14. EPOPROSTENOL SODIUM [Suspect]
     Active Substance: EPOPROSTENOL SODIUM
     Dosage: 18 NG/KG/MIN
     Route: 042
     Dates: start: 2023, end: 2023
  15. EPOPROSTENOL SODIUM [Suspect]
     Active Substance: EPOPROSTENOL SODIUM
     Dosage: 19 NG/KG/MIN
     Route: 042
     Dates: start: 2023, end: 20230720
  16. EPOPROSTENOL SODIUM [Suspect]
     Active Substance: EPOPROSTENOL SODIUM
     Dosage: 20 NG/KG/MIN
     Route: 042
     Dates: start: 20240705, end: 2024
  17. EPOPROSTENOL SODIUM [Suspect]
     Active Substance: EPOPROSTENOL SODIUM
     Dosage: 21 NG/KG/MIN
     Route: 042
     Dates: start: 2024, end: 2024
  18. EPOPROSTENOL SODIUM [Suspect]
     Active Substance: EPOPROSTENOL SODIUM
     Dosage: 22 NG/KG/MIN
     Route: 042
     Dates: start: 2024, end: 2024
  19. EPOPROSTENOL SODIUM [Suspect]
     Active Substance: EPOPROSTENOL SODIUM
     Dosage: 23 NG/KG/MIN
     Route: 042
     Dates: start: 2024, end: 2024
  20. EPOPROSTENOL SODIUM [Suspect]
     Active Substance: EPOPROSTENOL SODIUM
     Dosage: 24 NG/KG/MIN
     Route: 042
     Dates: start: 2024
  21. TRACLEER [Suspect]
     Active Substance: BOSENTAN
     Indication: Pulmonary arterial hypertension
     Route: 048
     Dates: start: 20130510, end: 2013
  22. TRACLEER [Suspect]
     Active Substance: BOSENTAN
     Route: 048
     Dates: start: 201107, end: 20110828
  23. TRACLEER [Suspect]
     Active Substance: BOSENTAN
     Route: 048
     Dates: start: 20110829, end: 20120531
  24. TADALAFIL [Concomitant]
     Active Substance: TADALAFIL
     Indication: Pulmonary arterial hypertension
     Route: 048
     Dates: start: 201107, end: 20110828
  25. TADALAFIL [Concomitant]
     Active Substance: TADALAFIL
     Route: 048
     Dates: start: 20110829
  26. OPSUMIT [Concomitant]
     Active Substance: MACITENTAN
     Indication: Pulmonary arterial hypertension
     Route: 048
     Dates: start: 20231024
  27. AMBRISENTAN [Concomitant]
     Active Substance: AMBRISENTAN
     Indication: Pulmonary arterial hypertension
     Route: 048
     Dates: start: 20140117, end: 20231023
  28. AMBRISENTAN [Concomitant]
     Active Substance: AMBRISENTAN
     Route: 048
     Dates: start: 2013, end: 20140116
  29. OXYGEN [Concomitant]
     Active Substance: OXYGEN
     Route: 055
     Dates: start: 2014
  30. OXYGEN [Concomitant]
     Active Substance: OXYGEN
  31. UPTRAVI [Concomitant]
     Active Substance: SELEXIPAG
     Indication: Pulmonary arterial hypertension
     Route: 048
     Dates: start: 20230608, end: 2023
  32. UPTRAVI [Concomitant]
     Active Substance: SELEXIPAG
     Route: 048
     Dates: start: 2023, end: 2023
  33. UPTRAVI [Concomitant]
     Active Substance: SELEXIPAG
     Route: 048
     Dates: start: 20231024, end: 202407

REACTIONS (6)
  - Cardiac failure high output [Unknown]
  - Hepatic function abnormal [Unknown]
  - Platelet count decreased [Unknown]
  - Headache [Recovered/Resolved]
  - Diarrhoea [Recovered/Resolved]
  - Flushing [Recovered/Resolved]

NARRATIVE: CASE EVENT DATE: 20120531
